FAERS Safety Report 8560211-0 (Version None)
Quarter: 2012Q3

REPORT INFORMATION
  Report Type: 
  Country: None (occurrence: None)
  Receive Date: 20120802
  Receipt Date: 20120726
  Transmission Date: 20120928
  Serious: Yes (Other)
  Sender: FDA-Public Use
  Company Number: AU-PFIZER INC-2012169215

PATIENT
  Age: 10 Year
  Sex: Female

DRUGS (3)
  1. RIFAMPICIN [Suspect]
     Indication: PULMONARY TUBERCULOSIS
     Dosage: 10 MG/KG/DAY
  2. PYRAZINAMIDE [Suspect]
     Indication: PULMONARY TUBERCULOSIS
     Dosage: 30 MG/KG/DAY
  3. ISONIAZID [Suspect]
     Indication: PULMONARY TUBERCULOSIS
     Dosage: 5 MG/KG/DAY

REACTIONS (6)
  - ACUTE HEPATIC FAILURE [None]
  - ENCEPHALOPATHY [None]
  - STATUS EPILEPTICUS [None]
  - GRAND MAL CONVULSION [None]
  - INTERNATIONAL NORMALISED RATIO INCREASED [None]
  - NEUROTOXICITY [None]
